FAERS Safety Report 13481824 (Version 1)
Quarter: 2017Q2

REPORT INFORMATION
  Report Type: Report from Study
  Country: US (occurrence: US)
  Receive Date: 20170426
  Receipt Date: 20170426
  Transmission Date: 20170830
  Serious: Yes (Other)
  Sender: FDA-Public Use
  Company Number: US-ROCHE-1923685

PATIENT
  Age: 50 Year
  Sex: Female
  Weight: 65.38 kg

DRUGS (3)
  1. XOLAIR [Suspect]
     Active Substance: OMALIZUMAB
     Indication: URTICARIA CHRONIC
     Route: 042
     Dates: end: 20160317
  2. XOLAIR [Suspect]
     Active Substance: OMALIZUMAB
     Route: 042
  3. KLONOPIN [Suspect]
     Active Substance: CLONAZEPAM
     Indication: PRODUCT USED FOR UNKNOWN INDICATION
     Route: 065

REACTIONS (5)
  - Urticaria [Unknown]
  - Pharyngeal oedema [Unknown]
  - Bronchitis [Unknown]
  - Road traffic accident [Unknown]
  - Joint swelling [Unknown]

NARRATIVE: CASE EVENT DATE: 201604
